FAERS Safety Report 16411324 (Version 1)
Quarter: 2019Q2

REPORT INFORMATION
  Report Type: Spontaneous
  Country: US (occurrence: US)
  Receive Date: 20190610
  Receipt Date: 20190610
  Transmission Date: 20190711
  Serious: No
  Sender: FDA-Public Use
  Company Number: US-BAYER-2019-110461

PATIENT
  Age: 86 Year
  Sex: Female
  Weight: 59 kg

DRUGS (2)
  1. LOTRIMIN ANTIFUNGAL (CLOTRIMAZOLE) [Suspect]
     Active Substance: CLOTRIMAZOLE
     Dosage: 2 DF, QD
     Route: 061
     Dates: start: 20190528
  2. LOTRIMIN ANTIFUNGAL (MICONAZOLE NITRATE) [Suspect]
     Active Substance: MICONAZOLE NITRATE
     Dosage: 2 DF
     Route: 061
     Dates: start: 20190525, end: 20190528

REACTIONS (3)
  - Off label use [Unknown]
  - Vulvovaginal burning sensation [Recovered/Resolved]
  - Product use in unapproved indication [Unknown]

NARRATIVE: CASE EVENT DATE: 20190525
